FAERS Safety Report 7798798-8 (Version None)
Quarter: 2011Q4

REPORT INFORMATION
  Report Type: 
  Country: None (occurrence: None)
  Receive Date: 20111005
  Receipt Date: 20111005
  Transmission Date: 20120403
  Serious: Yes (Other)
  Sender: FDA-Public Use
  Company Number: None

PATIENT
  Age: 63 Year
  Sex: Female
  Weight: 63.5036 kg

DRUGS (1)
  1. ABILIFY [Suspect]
     Indication: BIPOLAR DISORDER
     Dosage: 15MG QHS PO
     Route: 048
     Dates: start: 20110601, end: 20110901

REACTIONS (5)
  - TREMOR [None]
  - GENERAL PHYSICAL HEALTH DETERIORATION [None]
  - TRISMUS [None]
  - AKATHISIA [None]
  - TARDIVE DYSKINESIA [None]
